FAERS Safety Report 23721173 (Version 1)
Quarter: 2024Q2

REPORT INFORMATION
  Report Type: Spontaneous
  Country: US (occurrence: US)
  Receive Date: 20240409
  Receipt Date: 20240409
  Transmission Date: 20240716
  Serious: Yes (Hospitalization, Other)
  Sender: FDA-Public Use
  Company Number: US-SANDOZ-SDZ2024US036824

PATIENT
  Age: 90 Year
  Sex: Female

DRUGS (1)
  1. PREDNISONE [Suspect]
     Active Substance: PREDNISONE
     Indication: Myocarditis
     Dosage: UNK
     Route: 065

REACTIONS (4)
  - Nephritis [Recovered/Resolved]
  - Pulmonary embolism [Recovered/Resolved]
  - Adrenal insufficiency [Recovered/Resolved]
  - Drug titration error [Unknown]
